FAERS Safety Report 9631661 (Version 4)
Quarter: 2013Q4

REPORT INFORMATION
  Report Type: Spontaneous
  Country: JP (occurrence: JP)
  Receive Date: 20131018
  Receipt Date: 20131227
  Transmission Date: 20140711
  Serious: Yes (Death, Other)
  Sender: FDA-Public Use
  Company Number: JP-BAYER-2013-097102

PATIENT
  Age: 64 Year
  Sex: Female
  Weight: 47 kg

DRUGS (7)
  1. STIVARGA [Suspect]
     Indication: COLORECTAL CANCER
     Dosage: 160 MG, QD
     Route: 048
     Dates: start: 20130805, end: 20130810
  2. STIVARGA [Suspect]
     Indication: COLORECTAL CANCER
     Dosage: 160 MG, QD
     Route: 048
     Dates: start: 20130813, end: 20130828
  3. MAGMITT [Concomitant]
     Dosage: DAILY DOSE 250 MG
     Route: 048
     Dates: start: 201203
  4. GASTER [Concomitant]
     Dosage: DAILY DOSE 40 MG
     Route: 048
  5. BLOPRESS [Concomitant]
     Dosage: DAILY DOSE 2 MG
     Route: 048
     Dates: start: 20130511
  6. KERATINAMIN [Concomitant]
     Dosage: UNK
     Route: 061
     Dates: start: 201206
  7. HIRUDOID [Concomitant]
     Dosage: UNK
     Route: 061
     Dates: start: 201206

REACTIONS (5)
  - Hepatic failure [Not Recovered/Not Resolved]
  - Disseminated intravascular coagulation [Not Recovered/Not Resolved]
  - General physical health deterioration [Fatal]
  - Hepatic function abnormal [Recovering/Resolving]
  - Pyrexia [Not Recovered/Not Resolved]
